FAERS Safety Report 5144581-1 (Version None)
Quarter: 2006Q4

REPORT INFORMATION
  Report Type: 
  Country: None (occurrence: None)
  Receive Date: 20061031
  Receipt Date: 20061018
  Transmission Date: 20070319
  Serious: Yes (Death, Life-Threatening, Hospitalization, Other)
  Sender: FDA-Public Use
  Company Number: 2006108499

PATIENT
  Age: 57 Year
  Sex: Male
  Weight: 51 kg

DRUGS (10)
  1. VFEND [Suspect]
     Indication: BRONCHOPULMONARY ASPERGILLOSIS
     Dosage: 400 MG (200 MG, FREQUENCY:  BID), INTRAVENOUS
     Route: 042
     Dates: start: 20060810, end: 20060905
  2. CEFTAZIDIME [Concomitant]
  3. FIRSTCIN [Concomitant]
  4. CARBENIN [Concomitant]
  5. SAXIZON            (HYDROCORTISONE SODIUM SUCCINATE) [Concomitant]
  6. OMEPRAL                            (OMEPRAZOLE) (OMEPRAZOLE) [Concomitant]
  7. MUCOSTA                                           (REBAMIPIDE) [Concomitant]
  8. LASIX [Concomitant]
  9. FUNGIZONE [Concomitant]
  10. NEUTROGIN       (LENOGASTIM) [Concomitant]

REACTIONS (20)
  - BLOOD PRESSURE IMMEASURABLE [None]
  - BRONCHOPULMONARY ASPERGILLOSIS [None]
  - CARDIAC ARREST [None]
  - CONDITION AGGRAVATED [None]
  - DRUG INEFFECTIVE [None]
  - EYE ROLLING [None]
  - FEELING ABNORMAL [None]
  - GENERAL PHYSICAL HEALTH DETERIORATION [None]
  - HEART RATE DECREASED [None]
  - HODGKIN'S DISEASE [None]
  - HYPOGLYCAEMIA [None]
  - OXYGEN SATURATION DECREASED [None]
  - PALPITATIONS [None]
  - PLEURAL EFFUSION [None]
  - PROCEDURAL COMPLICATION [None]
  - PYREXIA [None]
  - RESPIRATORY ARREST [None]
  - SEPSIS [None]
  - THIRST [None]
  - WHITE BLOOD CELL COUNT DECREASED [None]
